FAERS Safety Report 6381099-2 (Version None)
Quarter: 2009Q3

REPORT INFORMATION
  Report Type: 
  Country: None (occurrence: None)
  Receive Date: 20090925
  Receipt Date: 20090925
  Transmission Date: 20100115
  Serious: Yes (Hospitalization)
  Sender: FDA-Public Use
  Company Number: None

PATIENT
  Age: 81 Year
  Sex: Female
  Weight: 7.89 kg

DRUGS (5)
  1. DOXYCYCLINE HYCLATE [Suspect]
     Indication: UPPER RESPIRATORY TRACT INFECTION
     Dosage: 100 MG TWICE DAILY PO
     Route: 048
     Dates: start: 20090913, end: 20090915
  2. DIGOXIN [Concomitant]
  3. WARFARIN SODIUM [Concomitant]
  4. RANITIDINE [Concomitant]
  5. AZITHROMYCIN [Concomitant]

REACTIONS (2)
  - DYSPNOEA [None]
  - MALAISE [None]
